FAERS Safety Report 14230629 (Version 1)
Quarter: 2017Q4

REPORT INFORMATION
  Report Type: Spontaneous
  Country: US (occurrence: US)
  Receive Date: 20171128
  Receipt Date: 20171128
  Transmission Date: 20180321
  Serious: Yes (Hospitalization)
  Sender: FDA-Public Use
  Company Number: US-PFIZER INC-2017508253

PATIENT
  Age: 75 Year
  Sex: Female
  Weight: 116 kg

DRUGS (1)
  1. LYRICA [Suspect]
     Active Substance: PREGABALIN
     Indication: PARAESTHESIA
     Dosage: 150 MG, 2X/DAY
     Route: 048
     Dates: start: 201708

REACTIONS (2)
  - Road traffic accident [Unknown]
  - Limb injury [Unknown]

NARRATIVE: CASE EVENT DATE: 20170925
